FAERS Safety Report 4524075-4 (Version None)
Quarter: 2004Q4

REPORT INFORMATION
  Report Type: 
  Country: None (occurrence: None)
  Receive Date: 20041209
  Receipt Date: 20040827
  Transmission Date: 20050328
  Serious: Yes (Hospitalization)
  Sender: FDA-Public Use
  Company Number: GXKR2004ES00440

PATIENT
  Age: 56 Year
  Sex: Male

DRUGS (1)
  1. AMOXICILLIN TRIHYDRATE (NGX) (AMOXICILLIN TRIHYDRATE) [Suspect]
     Indication: BACTERIAL INFECTION
     Dosage: 500 MG, ORAL
     Route: 048

REACTIONS (5)
  - ACUTE CORONARY SYNDROME [None]
  - ANAPHYLACTIC REACTION [None]
  - ANGINA PECTORIS [None]
  - MEDICATION ERROR [None]
  - SKIN TEST POSITIVE [None]
